FAERS Safety Report 15741018 (Version 2)
Quarter: 2018Q4

REPORT INFORMATION
  Report Type: Report from Study
  Country: GR (occurrence: GR)
  Receive Date: 20181219
  Receipt Date: 20181220
  Transmission Date: 20190205
  Serious: Yes (Hospitalization)
  Sender: FDA-Public Use
  Company Number: GR-SA-2018SA341415

PATIENT
  Age: 85 Year
  Sex: Female

DRUGS (9)
  1. LOBIVON [Concomitant]
     Active Substance: NEBIVOLOL HYDROCHLORIDE
  2. GLIMEPIRIDE. [Suspect]
     Active Substance: GLIMEPIRIDE
     Indication: DIABETES MELLITUS
     Dosage: UNK
     Route: 048
  3. INSULIN GLARGINE [Suspect]
     Active Substance: INSULIN GLARGINE
     Indication: DIABETES MELLITUS
     Dosage: 14 U, QD
     Route: 058
  4. INSULIN GLARGINE [Suspect]
     Active Substance: INSULIN GLARGINE
     Dosage: 10 U, QD
     Route: 058
  5. FUROSEMIDE. [Suspect]
     Active Substance: FUROSEMIDE
     Indication: BLOOD PRESSURE MEASUREMENT
     Dosage: UNK
     Route: 048
  6. INSULIN GLARGINE [Suspect]
     Active Substance: INSULIN GLARGINE
     Dosage: 14 U, 1X
     Route: 058
  7. ZYLORIC [Concomitant]
     Active Substance: ALLOPURINOL
  8. CATAPRESAN [CLONIDINE HYDROCHLORIDE] [Concomitant]
  9. SALOSPIR [Concomitant]
     Active Substance: ASPIRIN

REACTIONS (4)
  - Hyponatraemia [Unknown]
  - Hypokalaemia [Unknown]
  - Blood glucose increased [Unknown]
  - Haematocrit decreased [Unknown]
